FAERS Safety Report 25396207 (Version 1)
Quarter: 2025Q2

REPORT INFORMATION
  Report Type: Spontaneous
  Country: PT (occurrence: PT)
  Receive Date: 20250604
  Receipt Date: 20250604
  Transmission Date: 20250716
  Serious: Yes (Other)
  Sender: FRESENIUS KABI
  Company Number: None

PATIENT
  Age: 50 Year
  Sex: Female
  Weight: 96 kg

DRUGS (3)
  1. PACLITAXEL [Suspect]
     Active Substance: PACLITAXEL
     Indication: Breast cancer
     Dosage: WEEKLY ADMINISTRATION OF 80 MG/M2?FOA: SOLUTION FOR INJECTION
     Route: 042
     Dates: start: 20250429, end: 20250429
  2. Dexamethasone  [Dexamethasone] [Concomitant]
     Indication: Product used for unknown indication
     Route: 042
  3. CLEMASTINE [Concomitant]
     Active Substance: CLEMASTINE
     Indication: Product used for unknown indication
     Route: 042

REACTIONS (1)
  - Anaphylactic reaction [Recovered/Resolved]

NARRATIVE: CASE EVENT DATE: 20250429
